FAERS Safety Report 10101178 (Version 3)
Quarter: 2014Q2

REPORT INFORMATION
  Report Type: Spontaneous
  Country: BG (occurrence: BG)
  Receive Date: 20140424
  Receipt Date: 20140523
  Transmission Date: 20141212
  Serious: Yes (Hospitalization, Other)
  Sender: FDA-Public Use
  Company Number: BG-AMGEN-BGRSP2014028576

PATIENT
  Age: 43 Year
  Sex: Male
  Weight: 74 kg

DRUGS (4)
  1. NEULASTA [Suspect]
     Indication: PROPHYLAXIS
     Dosage: DOSE 1 AMP, FREQUENCY 1 AMP
     Route: 058
     Dates: start: 20140407
  2. DOCETAXEL [Concomitant]
     Indication: NEOPLASM MALIGNANT
     Dosage: FROM 4 TILL 06/APR/2014, TEN COURSE OF CHEMOTHERAPY
     Dates: start: 20140404, end: 20140406
  3. GEMCITABINE [Concomitant]
     Indication: NEOPLASM MALIGNANT
     Dosage: FROM 4 TILL 06/APR/2014, TEN COURSE OF CHEMOTHERAPY
     Dates: start: 20140404, end: 20140406
  4. VP-16 [Concomitant]
     Indication: NEOPLASM MALIGNANT
     Dosage: FROM 4 TILL 06/APR/2014, TEN COURSE OF CHEMOTHERAPY
     Dates: start: 20140404, end: 20140406

REACTIONS (11)
  - Febrile neutropenia [Recovered/Resolved]
  - Incorrect product storage [Unknown]
  - Fatigue [Not Recovered/Not Resolved]
  - Feeling hot [Not Recovered/Not Resolved]
  - Diarrhoea [Not Recovered/Not Resolved]
  - Abdominal rigidity [Not Recovered/Not Resolved]
  - Pallor [Not Recovered/Not Resolved]
  - Snoring [Not Recovered/Not Resolved]
  - Rales [Not Recovered/Not Resolved]
  - Blood pressure abnormal [Not Recovered/Not Resolved]
  - Heart rate abnormal [Not Recovered/Not Resolved]
